FAERS Safety Report 24589663 (Version 2)
Quarter: 2024Q4

REPORT INFORMATION
  Report Type: Spontaneous
  Country: JP (occurrence: JP)
  Receive Date: 20241107
  Receipt Date: 20241112
  Transmission Date: 20250115
  Serious: Yes (Hospitalization, Other)
  Sender: NOBELPHARMA AMERICA, LLC
  Company Number: JP-Nobelpharma America, LLC-NPC-2024-01851

PATIENT

DRUGS (1)
  1. SIROLIMUS [Suspect]
     Active Substance: SIROLIMUS
     Indication: Product used for unknown indication
     Dosage: UNKNOWN
     Route: 003

REACTIONS (3)
  - Gastrointestinal disorder [Unknown]
  - Surgery [Unknown]
  - Hospitalisation [Unknown]
